FAERS Safety Report 5576770-6 (Version None)
Quarter: 2007Q4

REPORT INFORMATION
  Report Type: 
  Country: None (occurrence: None)
  Receive Date: 20071228
  Receipt Date: 20071220
  Transmission Date: 20080405
  Serious: Yes (Hospitalization)
  Sender: FDA-Public Use
  Company Number: FR-ABBOTT-07P-056-0431066-00

PATIENT
  Sex: Female

DRUGS (7)
  1. HUMIRA [Suspect]
     Indication: RHEUMATOID ARTHRITIS
     Route: 058
     Dates: start: 20060601
  2. METHOTREXATE [Suspect]
     Indication: PAIN
  3. ETANERCEPT [Suspect]
     Indication: RHEUMATOID ARTHRITIS
     Dates: start: 20070601, end: 20070701
  4. PREDNISONE TAB [Concomitant]
     Indication: DRUG USE FOR UNKNOWN INDICATION
     Route: 048
  5. HYDROXYCHLOROQUINE SULFATE [Concomitant]
     Indication: DRUG USE FOR UNKNOWN INDICATION
  6. ANETHOLE TRITHIONE [Concomitant]
     Indication: DRUG USE FOR UNKNOWN INDICATION
  7. NSAID [Concomitant]
     Indication: PAIN

REACTIONS (5)
  - DERMOGRAPHISM [None]
  - DRY MOUTH [None]
  - LIVEDO RETICULARIS [None]
  - THROMBOANGIITIS OBLITERANS [None]
  - TOXIC SKIN ERUPTION [None]
